FAERS Safety Report 17685686 (Version 1)
Quarter: 2020Q2

REPORT INFORMATION
  Report Type: Spontaneous
  Country: GB (occurrence: GB)
  Receive Date: 20200420
  Receipt Date: 20200420
  Transmission Date: 20200714
  Serious: Yes (Death)
  Sender: FDA-Public Use
  Company Number: GB-MYLANLABS-2020M1038973

PATIENT
  Age: 68 Year
  Sex: Female
  Weight: 76.6 kg

DRUGS (12)
  1. GRANISETRON [Concomitant]
     Active Substance: GRANISETRON
  2. ROLAPITANT [Concomitant]
     Active Substance: ROLAPITANT
  3. LORAZEPAM. [Concomitant]
     Active Substance: LORAZEPAM
  4. EPIRUBICIN [Concomitant]
     Active Substance: EPIRUBICIN
  5. DEXAMETHASONE. [Concomitant]
     Active Substance: DEXAMETHASONE
  6. TRASTUZUMAB. [Suspect]
     Active Substance: TRASTUZUMAB
     Indication: BREAST CANCER
     Dosage: 588 MILLIGRAM
     Route: 042
     Dates: start: 20200205, end: 20200205
  7. FILGRASTIM [Concomitant]
     Active Substance: FILGRASTIM
  8. PERTUZUMAB. [Suspect]
     Active Substance: PERTUZUMAB
     Indication: BREAST CANCER
     Dosage: 840 MILLIGRAM
     Route: 042
     Dates: start: 20200205, end: 20200205
  9. METOCLOPRAMIDE. [Concomitant]
     Active Substance: METOCLOPRAMIDE
  10. CYCLOPHOSPHAMIDE. [Concomitant]
     Active Substance: CYCLOPHOSPHAMIDE
  11. FLUOROURACIL. [Concomitant]
     Active Substance: FLUOROURACIL
     Dosage: UNK
  12. DOCETAXEL. [Suspect]
     Active Substance: DOCETAXEL
     Indication: BREAST CANCER
     Dosage: 140 MILLIGRAM
     Route: 042
     Dates: start: 20200205, end: 20200205

REACTIONS (2)
  - Acute interstitial pneumonitis [Fatal]
  - Respiratory symptom [Not Recovered/Not Resolved]

NARRATIVE: CASE EVENT DATE: 20200214
